FAERS Safety Report 19278590 (Version 1)
Quarter: 2021Q2

REPORT INFORMATION
  Report Type: Spontaneous
  Country: US (occurrence: US)
  Receive Date: 20210520
  Receipt Date: 20210520
  Transmission Date: 20210717
  Serious: Yes (Hospitalization)
  Sender: FDA-Public Use
  Company Number: None

PATIENT
  Age: 64 Year
  Sex: Female
  Weight: 53.5 kg

DRUGS (11)
  1. ALENDRONATE [Concomitant]
     Active Substance: ALENDRONATE SODIUM
  2. CA CARB?CA GLUC?MAG OX?MG GLUC [Concomitant]
  3. VALACYCLOVIR [Concomitant]
     Active Substance: VALACYCLOVIR HYDROCHLORIDE
  4. STELARA [Suspect]
     Active Substance: USTEKINUMAB
  5. CHOLECALCIFEROL, VITAMIN D3 [Concomitant]
  6. CYANOCOBALAMIN, VITAMIN B?12 [Concomitant]
  7. HYDROCHLOROTHIAZIDE. [Concomitant]
     Active Substance: HYDROCHLOROTHIAZIDE
  8. LOSARTAN. [Concomitant]
     Active Substance: LOSARTAN
  9. ENTYVIO [Concomitant]
     Active Substance: VEDOLIZUMAB
  10. DILTIAZEM. [Concomitant]
     Active Substance: DILTIAZEM
  11. METOPROLOL SUCCINATE. [Concomitant]
     Active Substance: METOPROLOL SUCCINATE

REACTIONS (1)
  - Ileus [None]

NARRATIVE: CASE EVENT DATE: 20181226
